FAERS Safety Report 20030091 (Version 1)
Quarter: 2021Q4

REPORT INFORMATION
  Report Type: Spontaneous
  Country: PL (occurrence: PL)
  Receive Date: 20211103
  Receipt Date: 20211103
  Transmission Date: 20220304
  Serious: Yes (Hospitalization)
  Sender: FDA-Public Use
  Company Number: PL-CELGENE-POL-20211005087

PATIENT
  Age: 84 Year
  Sex: Female

DRUGS (11)
  1. VENETOCLAX [Suspect]
     Active Substance: VENETOCLAX
     Indication: Myelodysplastic syndrome
     Dosage: DAYS 1-14 PER CYCLE, CYCLE 28 DAYS
     Route: 048
     Dates: start: 20211004
  2. AZACITIDINE [Suspect]
     Active Substance: AZACITIDINE
     Indication: Myelodysplastic syndrome
     Dosage: 7 DAYS WITH FIRST 9 CALENDAR DAYS PER 28-DAY CYCLE.
     Route: 058
     Dates: start: 20211004
  3. DIGOXIN [Concomitant]
     Active Substance: DIGOXIN
     Indication: Atrial fibrillation
     Dosage: .1 MILLIGRAM
     Route: 048
     Dates: start: 2018
  4. DIGOXIN [Concomitant]
     Active Substance: DIGOXIN
     Indication: Atrial flutter
  5. MAGNESIUM CITRATE\PYRIDOXINE [Concomitant]
     Active Substance: MAGNESIUM CITRATE\PYRIDOXINE
     Indication: Prophylaxis
     Dosage: 159 MILLIGRAM
     Route: 051
     Dates: start: 20210826
  6. BISOPROLOL [Concomitant]
     Active Substance: BISOPROLOL
     Indication: Atrial fibrillation
     Dosage: 5 MILLIGRAM
     Route: 048
     Dates: start: 2018
  7. BISOPROLOL [Concomitant]
     Active Substance: BISOPROLOL
     Indication: Atrial flutter
  8. OMEPRAZOLE [Concomitant]
     Active Substance: OMEPRAZOLE
     Indication: Prophylaxis against gastrointestinal ulcer
     Dosage: 160 MILLIGRAM
     Route: 048
  9. ALLOPURINOL [Concomitant]
     Active Substance: ALLOPURINOL
     Indication: Prophylaxis
     Dosage: 100 MILLIGRAM
     Route: 048
     Dates: start: 20210826
  10. FUROSEMIDE [Concomitant]
     Active Substance: FUROSEMIDE
     Indication: Chronic kidney disease
     Dosage: 40 MILLIGRAM
     Route: 048
  11. LEVOFLOXACIN [Concomitant]
     Active Substance: LEVOFLOXACIN
     Indication: Urinary tract infection
     Dosage: 1000 MILLIGRAM
     Route: 048
     Dates: start: 20211006

REACTIONS (1)
  - Acute kidney injury [Recovered/Resolved]

NARRATIVE: CASE EVENT DATE: 20211008
